FAERS Safety Report 23831633 (Version 1)
Quarter: 2024Q2

REPORT INFORMATION
  Report Type: Spontaneous
  Country: US (occurrence: None)
  Receive Date: 20240507
  Receipt Date: 20240507
  Transmission Date: 20240716
  Serious: Yes (Hospitalization)
  Sender: FDA-Public Use
  Company Number: None

PATIENT
  Age: 52 Year
  Sex: Female
  Weight: 44.1 kg

DRUGS (7)
  1. PROLIA [Suspect]
     Active Substance: DENOSUMAB
     Indication: Osteoporosis
     Dosage: OTHER QUANTITY : 1 INJECTION(S);?OTHER FREQUENCY : EVERY 6 MONTHS;?
     Route: 058
     Dates: start: 20161101, end: 20240401
  2. PHENOBARBITAL [Concomitant]
     Active Substance: PHENOBARBITAL
  3. TOPAMAX [Concomitant]
     Active Substance: TOPIRAMATE
  4. ROSUVASTATIN [Concomitant]
     Active Substance: ROSUVASTATIN
  5. GABAPENTIN [Concomitant]
     Active Substance: GABAPENTIN
  6. VITAMIN D3 [Concomitant]
     Active Substance: CHOLECALCIFEROL
  7. Gummy Multivitamin [Concomitant]

REACTIONS (8)
  - Osteoporosis [None]
  - Hip surgery [None]
  - Alopecia [None]
  - Madarosis [None]
  - Hip fracture [None]
  - Femur fracture [None]
  - Groin pain [None]
  - Pain in extremity [None]

NARRATIVE: CASE EVENT DATE: 20200720
